FAERS Safety Report 24058226 (Version 1)
Quarter: 2024Q3

REPORT INFORMATION
  Report Type: Spontaneous
  Country: GB (occurrence: GB)
  Receive Date: 20240708
  Receipt Date: 20240708
  Transmission Date: 20241016
  Serious: Yes (Life-Threatening, Hospitalization, Other)
  Sender: DEXCEL
  Company Number: None

PATIENT
  Sex: Female

DRUGS (6)
  1. OMEPRAZOLE [Interacting]
     Active Substance: OMEPRAZOLE
     Dosage: 20MG OD
     Dates: start: 20180402, end: 20240424
  2. FUROSEMIDE [Interacting]
     Active Substance: FUROSEMIDE
     Indication: Adverse drug reaction
     Dosage: 40MG BD- RECENT DOSE INCREASE FROM 40MG OM, 20MG LUNCH IN JANUARY 2024 HOSPITAL ADMISSION
     Dates: start: 202008, end: 20240424
  3. WARFARIN [Concomitant]
     Active Substance: WARFARIN
     Indication: Atrial fibrillation
  4. LATANOPROST [Concomitant]
     Active Substance: LATANOPROST
     Indication: Adverse drug reaction
  5. BISOPROLOL [Concomitant]
     Active Substance: BISOPROLOL\BISOPROLOL FUMARATE
     Indication: Atrial fibrillation
  6. ATORVASTATIN [Concomitant]
     Active Substance: ATORVASTATIN

REACTIONS (4)
  - Hypomagnesaemia [Recovered/Resolved]
  - Hypokalaemia [Recovered/Resolved]
  - Hypocalcaemia [Recovered/Resolved]
  - Drug interaction [Recovered/Resolved]
